FAERS Safety Report 8182038-4 (Version None)
Quarter: 2012Q1

REPORT INFORMATION
  Report Type: 
  Country: None (occurrence: None)
  Receive Date: 20120302
  Receipt Date: 20120223
  Transmission Date: 20120608
  Serious: Yes (Other)
  Sender: FDA-Public Use
  Company Number: CN-ASTRAZENECA-2012SE12511

PATIENT
  Age: 73 Year
  Sex: Female

DRUGS (2)
  1. PRILOSEC [Suspect]
     Route: 048
  2. MIDDLE AND LONG CHAIN FAT EMULSTION [Concomitant]
     Route: 042

REACTIONS (8)
  - CHROMATURIA [None]
  - DECREASED APPETITE [None]
  - YELLOW SKIN [None]
  - DYSPNOEA [None]
  - CHILLS [None]
  - CONFUSIONAL STATE [None]
  - PYREXIA [None]
  - RESTLESSNESS [None]
